FAERS Safety Report 4492808-1 (Version None)
Quarter: 2004Q4

REPORT INFORMATION
  Report Type: 
  Country: None (occurrence: None)
  Receive Date: 20041102
  Receipt Date: 20041015
  Transmission Date: 20050328
  Serious: Yes (Hospitalization)
  Sender: FDA-Public Use
  Company Number: 29649

PATIENT
  Age: 82 Year
  Sex: Female

DRUGS (8)
  1. TRAVOPROST 0.004% SOLUTION [Suspect]
     Dosage: OPHT
     Route: 047
  2. BISOPROLOL FUMARATE [Concomitant]
  3. LOSARTAN + HYDROCHLOROTHIAZIDE [Concomitant]
  4. ACETYLSALICYLATE LYSINE [Concomitant]
  5. ZOLPIDEM [Concomitant]
  6. NICERGOLINE [Concomitant]
  7. POVIDONE [Concomitant]
  8. PIAS [Concomitant]

REACTIONS (9)
  - AMNESIA [None]
  - BLOOD PRESSURE INCREASED [None]
  - BRADYCARDIA [None]
  - ELECTROCARDIOGRAM T WAVE INVERSION [None]
  - FACE INJURY [None]
  - HAEMATOMA [None]
  - LOSS OF CONSCIOUSNESS [None]
  - MOUTH INJURY [None]
  - SUPRAVENTRICULAR EXTRASYSTOLES [None]
